FAERS Safety Report 17292757 (Version 1)
Quarter: 2020Q1

REPORT INFORMATION
  Report Type: Report from Study
  Country: US (occurrence: US)
  Receive Date: 20200121
  Receipt Date: 20200121
  Transmission Date: 20200409
  Serious: Yes (Hospitalization)
  Sender: FDA-Public Use
  Company Number: US-BAYER-2020-005131

PATIENT
  Age: 48 Year
  Sex: Male

DRUGS (5)
  1. VITAMIN B [Concomitant]
     Active Substance: VITAMIN B
     Dosage: UNK
  2. VITAMIN D [VITAMIN D NOS] [Concomitant]
     Active Substance: VITAMIN D NOS
  3. ASCORBIC ACID. [Concomitant]
     Active Substance: ASCORBIC ACID
     Dosage: UNK
  4. RETINOL [Concomitant]
     Active Substance: RETINOL
     Dosage: UNK
  5. BETASERON [Suspect]
     Active Substance: INTERFERON BETA-1B
     Indication: PRIMARY PROGRESSIVE MULTIPLE SCLEROSIS
     Dosage: 8 MIU, QOD
     Route: 058
     Dates: start: 19960421

REACTIONS (4)
  - Seizure [None]
  - Inappropriate schedule of product administration [None]
  - Product use in unapproved indication [None]
  - Urinary tract infection [None]

NARRATIVE: CASE EVENT DATE: 201912
